FAERS Safety Report 6310904-0 (Version None)
Quarter: 2009Q3

REPORT INFORMATION
  Report Type: 
  Country: None (occurrence: None)
  Receive Date: 20090812
  Receipt Date: 20090721
  Transmission Date: 20100115
  Serious: Yes (Other)
  Sender: FDA-Public Use
  Company Number: JPI-P-007877

PATIENT
  Age: 22 Year
  Sex: Male

DRUGS (6)
  1. FLUVOXAMINE MALEATE [Suspect]
     Indication: OBSESSIVE-COMPULSIVE DISORDER
     Dosage: (50 MG, 1 D), ORAL; (100 MG, 1 D), ORAL; (150 MG, 1 D), ORAL; (100 MG, 1 D), ORAL; (50 MG, 1 D), ORA
     Route: 048
     Dates: start: 20020306, end: 20020313
  2. FLUVOXAMINE MALEATE [Suspect]
     Indication: OBSESSIVE-COMPULSIVE DISORDER
     Dosage: (50 MG, 1 D), ORAL; (100 MG, 1 D), ORAL; (150 MG, 1 D), ORAL; (100 MG, 1 D), ORAL; (50 MG, 1 D), ORA
     Route: 048
     Dates: start: 20020314, end: 20020321
  3. FLUVOXAMINE MALEATE [Suspect]
     Indication: OBSESSIVE-COMPULSIVE DISORDER
     Dosage: (50 MG, 1 D), ORAL; (100 MG, 1 D), ORAL; (150 MG, 1 D), ORAL; (100 MG, 1 D), ORAL; (50 MG, 1 D), ORA
     Route: 048
     Dates: start: 20020322, end: 20060202
  4. FLUVOXAMINE MALEATE [Suspect]
     Indication: OBSESSIVE-COMPULSIVE DISORDER
     Dosage: (50 MG, 1 D), ORAL; (100 MG, 1 D), ORAL; (150 MG, 1 D), ORAL; (100 MG, 1 D), ORAL; (50 MG, 1 D), ORA
     Route: 048
     Dates: start: 20060203, end: 20090704
  5. FLUVOXAMINE MALEATE [Suspect]
     Indication: OBSESSIVE-COMPULSIVE DISORDER
     Dosage: (50 MG, 1 D), ORAL; (100 MG, 1 D), ORAL; (150 MG, 1 D), ORAL; (100 MG, 1 D), ORAL; (50 MG, 1 D), ORA
     Route: 048
     Dates: start: 20090705
  6. CLOTIAZEPAM [Concomitant]

REACTIONS (1)
  - HEMIPARESIS [None]
